FAERS Safety Report 16758499 (Version 1)
Quarter: 2019Q3

REPORT INFORMATION
  Report Type: Spontaneous
  Country: GB (occurrence: GB)
  Receive Date: 20190830
  Receipt Date: 20190830
  Transmission Date: 20191005
  Serious: Yes (Other)
  Sender: FDA-Public Use
  Company Number: GB-TEVA-2019-GB-1098769

PATIENT
  Age: 61 Year
  Sex: Female
  Weight: 70 kg

DRUGS (11)
  1. CLOPIDOGREL [Concomitant]
     Active Substance: CLOPIDOGREL BISULFATE
     Dosage: 1 DOSAGE FORM, 1 DAY
     Dates: start: 20180427
  2. PROPRANOLOL [Concomitant]
     Active Substance: PROPRANOLOL HYDROCHLORIDE
     Dosage: 4 DOSAGE FORM, 1 DAY
     Dates: start: 20181102
  3. WAVE PHARMA DULOXETINE [Concomitant]
     Dosage: 2 DOSAGE FORM, 1 DAY
     Dates: start: 20181123
  4. CARBIMAZOLE [Concomitant]
     Active Substance: CARBIMAZOLE
     Dosage: 1 DOSAGE FORM, 1 DAY
     Dates: start: 20180427
  5. FENBID [Concomitant]
     Active Substance: IBUPROFEN
     Dosage: APPLY UP TO 3 TIMES/DAY WHEN NEEDED.
     Dates: start: 20190328, end: 20190329
  6. LANSOPRAZOLE. [Concomitant]
     Active Substance: LANSOPRAZOLE
     Dosage: 1 DOSAGE FORM, 1 DAY
     Dates: start: 20180427
  7. GABAPENTIN. [Suspect]
     Active Substance: GABAPENTIN
     Dosage: 900 MG, 1 DAY
     Dates: start: 20190427
  8. RAMIPRIL. [Concomitant]
     Active Substance: RAMIPRIL
     Dosage: 1 DOSAGE FORM, 1 DAY
     Dates: start: 20180427
  9. TRAMADOL. [Concomitant]
     Active Substance: TRAMADOL
     Dosage: TAKE ONE TO TWO UP TO 4 TIMES A DAY.
     Dates: start: 20190522
  10. ATORVASTATIN [Concomitant]
     Active Substance: ATORVASTATIN
     Dosage: 1 DOSAGE FORM, 1 DAY
     Dates: start: 20180427
  11. ZAPAIN [Concomitant]
     Active Substance: ACETAMINOPHEN\CODEINE PHOSPHATE
     Dosage: TAKE 1 OR 2 UP TO 4 TIMES PER DAY.
     Dates: start: 20180427, end: 20190522

REACTIONS (1)
  - Rash generalised [Recovered/Resolved]
